FAERS Safety Report 10655630 (Version 1)
Quarter: 2014Q4

REPORT INFORMATION
  Report Type: Spontaneous
  Country: US (occurrence: None)
  Receive Date: 20141205
  Receipt Date: 20141205
  Transmission Date: 20150529
  Serious: Yes (Hospitalization)
  Sender: FDA-Public Use
  Company Number: 163-POMAL-14090236

PATIENT
  Age: 75 Year
  Sex: Male

DRUGS (25)
  1. SEVELAMER(SEVELAMIER) [Concomitant]
  2. PALONSETRON(PALONSETRON(INJECTION) [Concomitant]
  3. PROCHLORPERAZINE(PROCHLORPERAZINE(INJECTION) [Concomitant]
  4. ALLOPURINOL(ALLOPURINOL) [Concomitant]
  5. LORAZEPAM(LORAZEPAM) [Concomitant]
     Active Substance: LORAZEPAM
  6. ALBUTEROL (SALBUTAMOL)(INHALANT) [Concomitant]
  7. ASPIRIN(ACETYLSALICYLIC ACID) [Concomitant]
     Active Substance: ASPIRIN
  8. CARVEDILOL(CARVEDILOL) [Concomitant]
  9. POMALYST [Suspect]
     Active Substance: POMALIDOMIDE
     Indication: PLASMA CELL MYELOMA
     Dosage: 4 MG, 21 IN 28 D, PO
     Route: 048
     Dates: start: 20140114, end: 201408
  10. OMEPRAZOLE(OMEPRAZOLE) [Concomitant]
     Active Substance: OMEPRAZOLE
  11. DEXMATHASONE(DEXAMETHASONE) [Concomitant]
  12. HYDROCORTISONE(HYDROCORTISONE) [Concomitant]
  13. DOCUSATE SODIUM (DOCUSATE SODIUM) [Concomitant]
     Active Substance: DOCUSATE SODIUM
  14. SENNA(SENNA ALEXANDRINA) [Concomitant]
  15. FOSAPREPITANT(FOSAPREPITANT) [Concomitant]
  16. NORMAL SALINE(SODIUM CHLORIDE)(INJECTION) [Concomitant]
  17. ACYCLOVIR(ACICLOVIR) [Concomitant]
  18. LOSARTAN(LOSARTAN) [Concomitant]
     Active Substance: LOSARTAN
  19. LEVOTHYROXINE SODIUM(LEVOTHYROXINE SODIUM) [Concomitant]
  20. OXYCODONE(OXYCODONE) [Concomitant]
     Active Substance: OXYCODONE
  21. ENOXAPARIN(ENOXAPARIN)(INJECTION) [Concomitant]
  22. FENTANYL(FENTANYL) [Concomitant]
     Active Substance: FENTANYL CITRATE
  23. DIPHENHYDRAMINE(DIPHENHYDRAMINE) [Concomitant]
  24. EPINEPHRINE(EPINEPHRINE) [Concomitant]
  25. FAMOTIDINE(FAMOTIDINE) [Concomitant]

REACTIONS (3)
  - Full blood count decreased [None]
  - Plasma cell myeloma [None]
  - Neutropenic sepsis [None]

NARRATIVE: CASE EVENT DATE: 201409
